FAERS Safety Report 12599158 (Version 2)
Quarter: 2016Q4

REPORT INFORMATION
  Report Type: Spontaneous
  Country: CA (occurrence: CA)
  Receive Date: 20160727
  Receipt Date: 20161107
  Transmission Date: 20170207
  Serious: Yes (Other)
  Sender: FDA-Public Use
  Company Number: CA-SUNOVION-2016SUN001797

PATIENT
  Age: 4 Decade
  Sex: Female

DRUGS (8)
  1. LYRICA [Concomitant]
     Active Substance: PREGABALIN
     Dosage: 300 MG, HS
     Route: 048
  2. ZOLOFT [Concomitant]
     Active Substance: SERTRALINE HYDROCHLORIDE
     Dosage: 150 MG, QD
     Route: 048
  3. ATASOL [Concomitant]
     Active Substance: ACETAMINOPHEN
     Dosage: 30 DF, AS NECESSARY
     Route: 048
  4. LATUDA [Suspect]
     Active Substance: LURASIDONE HYDROCHLORIDE
     Indication: AFFECTIVE DISORDER
     Dosage: 20 MG, HS
     Route: 048
     Dates: start: 20160129
  5. LATUDA [Suspect]
     Active Substance: LURASIDONE HYDROCHLORIDE
     Indication: DEPRESSION
     Dosage: 40 MG, HS
     Route: 048
     Dates: start: 20160222
  6. LITHIUM. [Concomitant]
     Active Substance: LITHIUM
     Dosage: 1200 MG, HS
     Route: 048
  7. IMOVANE [Concomitant]
     Active Substance: ZOPICLONE
     Dosage: 15 MG, HS
     Route: 048
  8. CLONAZEPAM. [Concomitant]
     Active Substance: CLONAZEPAM
     Dosage: 1 MG, QID
     Route: 048

REACTIONS (6)
  - Syncope [Unknown]
  - Concussion [Unknown]
  - Fall [Unknown]
  - Atrioventricular block first degree [Unknown]
  - Off label use [Unknown]
  - Head injury [Unknown]

NARRATIVE: CASE EVENT DATE: 20160212
